FAERS Safety Report 7088037-8 (Version None)
Quarter: 2010Q4

REPORT INFORMATION
  Report Type: 
  Country: None (occurrence: None)
  Receive Date: 20101014
  Receipt Date: 20101006
  Transmission Date: 20110411
  Serious: Yes (Other)
  Sender: FDA-Public Use
  Company Number: 2010-00890

PATIENT
  Sex: Female

DRUGS (1)
  1. ZICAM ALLERGY RELIEF GEL SWABS [Suspect]
     Dates: start: 20100930

REACTIONS (1)
  - ADVERSE DRUG REACTION [None]
